FAERS Safety Report 5118215-6 (Version None)
Quarter: 2006Q4

REPORT INFORMATION
  Report Type: 
  Country: None (occurrence: None)
  Receive Date: 20061002
  Receipt Date: 20060601
  Transmission Date: 20070319
  Serious: No
  Sender: FDA-Public Use
  Company Number: US-BRISTOL-MYERS SQUIBB COMPANY-13398243

PATIENT
  Age: 58 Year
  Sex: Female
  Weight: 53 kg

DRUGS (7)
  1. ORENCIA [Suspect]
     Indication: RHEUMATOID ARTHRITIS
     Route: 042
     Dates: start: 20060321
  2. SYNTHROID [Concomitant]
  3. NEXIUM [Concomitant]
  4. COZAAR [Concomitant]
  5. PREDNISONE [Concomitant]
  6. BIOTIN [Concomitant]
  7. VITAMINS [Concomitant]

REACTIONS (5)
  - ALOPECIA [None]
  - HOT FLUSH [None]
  - NAUSEA [None]
  - STOMATITIS [None]
  - VOMITING [None]
